FAERS Safety Report 4298688-1 (Version None)
Quarter: 2004Q1

REPORT INFORMATION
  Report Type: 
  Country: None (occurrence: None)
  Receive Date: 20040126
  Receipt Date: 20031022
  Transmission Date: 20041129
  Serious: No
  Sender: FDA-Public Use
  Company Number: USA031050593

PATIENT
  Sex: Male

DRUGS (2)
  1. STRATTERA [Suspect]
     Dosage: 80 MG/DAY
  2. RITALIN [Concomitant]

REACTIONS (3)
  - APATHY [None]
  - ASTHENIA [None]
  - DEPENDENT PERSONALITY DISORDER [None]
